FAERS Safety Report 8029685-8 (Version None)
Quarter: 2012Q1

REPORT INFORMATION
  Report Type: 
  Country: None (occurrence: None)
  Receive Date: 20120109
  Receipt Date: 20120103
  Transmission Date: 20120608
  Serious: Yes (Other)
  Sender: FDA-Public Use
  Company Number: BR-PFIZER INC-2012000979

PATIENT
  Age: 87 Year
  Sex: Female
  Weight: 48 kg

DRUGS (1)
  1. XALATAN [Suspect]
     Indication: GLAUCOMA
     Dosage: ONE DROP IN EACH EYE (3 UG), 2X/DAY
     Route: 047
     Dates: start: 20110101

REACTIONS (2)
  - INTRAOCULAR PRESSURE INCREASED [None]
  - INTRAOCULAR PRESSURE DECREASED [None]
